FAERS Safety Report 9544000 (Version 1)
Quarter: 2013Q2

REPORT INFORMATION
  Report Type: Spontaneous
  Country: US (occurrence: None)
  Receive Date: 20130524
  Receipt Date: 20130524
  Transmission Date: 20140414
  Serious: Yes (Other)
  Sender: FDA-Public Use
  Company Number: PHEH2013US001356

PATIENT
  Age: 47 Year
  Sex: Female
  Weight: 57.6 kg

DRUGS (6)
  1. GILENYA [Suspect]
     Indication: MULTIPLE SCLEROSIS
     Route: 048
     Dates: start: 20111123, end: 20120510
  2. AMBIEN (ZOLPIDEM TARTRATE) [Concomitant]
  3. LIDOCAIN HCL (LIDOCAINE HYDROCHLORIDE) [Concomitant]
  4. GABAPENTIN [Concomitant]
  5. NALTREXONE [Concomitant]
  6. SYNTHROID (LEVOTHYROXINE SODIUM) [Concomitant]

REACTIONS (2)
  - Lymphocyte count decreased [None]
  - White blood cell count decreased [None]
